FAERS Safety Report 9530445 (Version 2)
Quarter: 2013Q4

REPORT INFORMATION
  Report Type: Spontaneous
  Country: SE (occurrence: SE)
  Receive Date: 20130918
  Receipt Date: 20131017
  Transmission Date: 20140711
  Serious: Yes (Congenital Anomaly)
  Sender: FDA-Public Use
  Company Number: SE-BIOGENIDEC-2013BI086639

PATIENT
  Sex: 0

DRUGS (2)
  1. TYSABRI [Suspect]
     Indication: MATERNAL EXPOSURE TIMING UNSPECIFIED
     Route: 064
     Dates: end: 20120629
  2. KAVEPENIN [Concomitant]

REACTIONS (1)
  - Talipes [Not Recovered/Not Resolved]
